FAERS Safety Report 25649140 (Version 1)
Quarter: 2025Q3

REPORT INFORMATION
  Report Type: Spontaneous
  Country: CN (occurrence: CN)
  Receive Date: 20250806
  Receipt Date: 20250806
  Transmission Date: 20251020
  Serious: Yes (Hospitalization, Other)
  Sender: STRIDES
  Company Number: CN-STRIDES ARCOLAB LIMITED-2025SP009643

PATIENT
  Age: 19 Month
  Sex: Female

DRUGS (15)
  1. VANCOMYCIN [Suspect]
     Active Substance: VANCOMYCIN
     Indication: Diarrhoea infectious
     Route: 065
  2. VANCOMYCIN [Suspect]
     Active Substance: VANCOMYCIN
     Indication: Haemophagocytic lymphohistiocytosis
  3. PREDNISOLONE [Suspect]
     Active Substance: PREDNISOLONE
     Indication: Haemophagocytic lymphohistiocytosis
     Route: 048
  4. PREDNISOLONE [Suspect]
     Active Substance: PREDNISOLONE
     Indication: Langerhans^ cell histiocytosis
     Route: 048
  5. PREDNISOLONE [Suspect]
     Active Substance: PREDNISOLONE
     Indication: Diarrhoea infectious
     Route: 065
  6. CEFOPERAZONE [Suspect]
     Active Substance: CEFOPERAZONE
     Indication: Diarrhoea infectious
     Route: 065
  7. CEFOPERAZONE [Suspect]
     Active Substance: CEFOPERAZONE
     Indication: Haemophagocytic lymphohistiocytosis
  8. IMIPENEM [Suspect]
     Active Substance: IMIPENEM
     Indication: Diarrhoea infectious
     Route: 065
  9. IMIPENEM [Suspect]
     Active Substance: IMIPENEM
     Indication: Haemophagocytic lymphohistiocytosis
  10. METHYLPREDNISOLONE [Suspect]
     Active Substance: METHYLPREDNISOLONE
     Indication: Haemophagocytic lymphohistiocytosis
     Route: 065
  11. METHYLPREDNISOLONE [Suspect]
     Active Substance: METHYLPREDNISOLONE
     Indication: Diarrhoea infectious
  12. MESALAMINE [Concomitant]
     Active Substance: MESALAMINE
     Indication: Inflammatory bowel disease
     Route: 065
  13. THALIDOMIDE [Concomitant]
     Active Substance: THALIDOMIDE
     Indication: Inflammatory bowel disease
     Route: 065
  14. VINCRISTINE [Concomitant]
     Active Substance: VINCRISTINE
     Indication: Langerhans^ cell histiocytosis
     Route: 065
  15. DABRAFENIB [Concomitant]
     Active Substance: DABRAFENIB
     Indication: Langerhans^ cell histiocytosis
     Route: 065

REACTIONS (2)
  - Disease recurrence [Unknown]
  - Off label use [Unknown]
